FAERS Safety Report 5999683-4 (Version None)
Quarter: 2008Q4

REPORT INFORMATION
  Report Type: 
  Country: None (occurrence: None)
  Receive Date: 20081215
  Receipt Date: 20081201
  Transmission Date: 20090506
  Serious: Yes (Hospitalization, Other)
  Sender: FDA-Public Use
  Company Number: PR-AMGEN-QUU303290

PATIENT
  Sex: Male
  Weight: 68.6 kg

DRUGS (10)
  1. NEULASTA [Suspect]
     Indication: CHEMOTHERAPY
     Route: 058
     Dates: start: 20080430, end: 20081020
  2. RITUXIMAB [Suspect]
     Indication: LYMPHOMA
     Route: 042
     Dates: start: 20080428, end: 20080527
  3. OXALIPLATIN [Suspect]
     Indication: LYMPHOMA
     Route: 042
     Dates: start: 20080429, end: 20080528
  4. GEMCITABINE HCL [Suspect]
     Indication: LYMPHOMA
     Route: 042
     Dates: start: 20080429, end: 20080528
  5. MESNA [Suspect]
     Dates: start: 20080617, end: 20081020
  6. IFOSFAMIDE [Suspect]
     Dates: start: 20080617, end: 20081020
  7. NOVANTRONE [Suspect]
     Dates: start: 20080617, end: 20081020
  8. ETOPOSIDE [Suspect]
     Dates: start: 20080617, end: 20081020
  9. UNSPECIFIED ANTIANXIETY AGENT [Concomitant]
  10. UNSPECIFIED MEDICATION [Concomitant]

REACTIONS (3)
  - CELLULITIS [None]
  - DISEASE PROGRESSION [None]
  - FEBRILE NEUTROPENIA [None]
